FAERS Safety Report 5928255-2 (Version None)
Quarter: 2008Q4

REPORT INFORMATION
  Report Type: 
  Country: None (occurrence: None)
  Receive Date: 20081023
  Receipt Date: 20081013
  Transmission Date: 20090506
  Serious: Yes (Hospitalization)
  Sender: FDA-Public Use
  Company Number: ES-ELI_LILLY_AND_COMPANY-ES200810004043

PATIENT
  Age: 91 Year
  Sex: Female

DRUGS (4)
  1. FORTEO [Suspect]
     Indication: OSTEOPOROSIS
     Dosage: 20 UG, UNKNOWN
     Route: 058
     Dates: start: 20080918
  2. OMEPRAZOLE [Concomitant]
     Indication: PROPHYLAXIS
     Dosage: 20 MG, UNKNOWN
     Route: 065
  3. ASPIRIN [Concomitant]
     Dosage: 100 MG, UNKNOWN
     Route: 065
  4. TERMALGIN [Concomitant]
     Dosage: 1 MG, 3/D
     Route: 065

REACTIONS (4)
  - ABNORMAL BEHAVIOUR [None]
  - CONTUSION [None]
  - EPISTAXIS [None]
  - FALL [None]
